FAERS Safety Report 6716067-1 (Version None)
Quarter: 2010Q2

REPORT INFORMATION
  Report Type: 
  Country: None (occurrence: None)
  Receive Date: 20100507
  Receipt Date: 20100503
  Transmission Date: 20101027
  Serious: Yes (Other)
  Sender: FDA-Public Use
  Company Number: A0857692A

PATIENT
  Sex: Female

DRUGS (4)
  1. ADVAIR DISKUS 100/50 [Suspect]
     Indication: CHRONIC OBSTRUCTIVE PULMONARY DISEASE
     Route: 055
  2. CORTISONE [Concomitant]
  3. EYE DROPS [Concomitant]
  4. MULTI-VITAMINS [Concomitant]

REACTIONS (2)
  - DRY EYE [None]
  - MACULAR DEGENERATION [None]
